FAERS Safety Report 9343051 (Version 2)
Quarter: 2013Q4

REPORT INFORMATION
  Report Type: Spontaneous
  Country: US (occurrence: US)
  Receive Date: 20130611
  Receipt Date: 20131030
  Transmission Date: 20140711
  Serious: Yes (Hospitalization, Other)
  Sender: FDA-Public Use
  Company Number: US-009507513-1306USA004353

PATIENT
  Sex: Female
  Weight: 70.3 kg

DRUGS (1)
  1. NUVARING [Suspect]
     Indication: CONTRACEPTION
     Dosage: INSERT 1 RING AND LEAVE FOR 3 WEEKS
     Route: 067
     Dates: start: 20100203, end: 20110729

REACTIONS (10)
  - Pleural effusion [Unknown]
  - Pulmonary embolism [Recovering/Resolving]
  - Anxiety [Unknown]
  - Flushing [Unknown]
  - Pruritus [Unknown]
  - Depression [Unknown]
  - Wisdom teeth removal [Unknown]
  - Hand fracture [Unknown]
  - Intervertebral disc protrusion [Unknown]
  - Migraine [Unknown]
